FAERS Safety Report 8780184 (Version 1)
Quarter: 2012Q4

REPORT INFORMATION
  Report Type: Spontaneous
  Country: US (occurrence: None)
  Receive Date: 20120831
  Receipt Date: 20120831
  Transmission Date: 20130627
  Serious: Yes (Life-Threatening, Hospitalization)
  Sender: FDA-Public Use
  Company Number: None

PATIENT
  Age: 68 Year
  Sex: Male
  Weight: 90.72 kg

DRUGS (1)
  1. RISPERIDONE [Suspect]
     Route: 048
     Dates: start: 1995, end: 2012

REACTIONS (6)
  - Supraventricular tachycardia [None]
  - Atrial fibrillation [None]
  - Confusional state [None]
  - Coordination abnormal [None]
  - Mental impairment [None]
  - Impaired reasoning [None]
